FAERS Safety Report 9127485 (Version 1)
Quarter: 2013Q1

REPORT INFORMATION
  Report Type: Spontaneous
  Country: US (occurrence: US)
  Receive Date: 20130228
  Receipt Date: 20130228
  Transmission Date: 20140127
  Serious: No
  Sender: FDA-Public Use
  Company Number: US-GLAXOSMITHKLINE-A0978977A

PATIENT
  Sex: Female

DRUGS (3)
  1. LAMICTAL [Suspect]
     Indication: PRODUCT USED FOR UNKNOWN INDICATION
  2. ZOLOFT [Suspect]
     Indication: PRODUCT USED FOR UNKNOWN INDICATION
  3. FLEXERIL [Suspect]
     Indication: PRODUCT USED FOR UNKNOWN INDICATION

REACTIONS (4)
  - Muscle twitching [Recovered/Resolved]
  - Blepharospasm [Unknown]
  - Muscle tightness [Unknown]
  - Adverse event [Unknown]
